FAERS Safety Report 7757844-8 (Version None)
Quarter: 2011Q3

REPORT INFORMATION
  Report Type: 
  Country: None (occurrence: None)
  Receive Date: 20110918
  Receipt Date: 20110906
  Transmission Date: 20111222
  Serious: Yes (Death)
  Sender: FDA-Public Use
  Company Number: US-BRISTOL-MYERS SQUIBB COMPANY-16058190

PATIENT

DRUGS (4)
  1. CARMUSTINE [Suspect]
     Indication: CHEMOTHERAPY
  2. CYCLOPHOSPHAMIDE [Suspect]
     Indication: CHEMOTHERAPY
     Dosage: 1DF: 1.8G/SQ.M
     Route: 042
  3. PACLITAXEL [Suspect]
     Indication: CHEMOTHERAPY
     Dosage: ADMINISTERED AS A 24HR CONTINUOUS INFUSION.
     Route: 042
  4. ETOPOPHOS PRESERVATIVE FREE [Suspect]
     Indication: CHEMOTHERAPY

REACTIONS (1)
  - PSEUDOMONAL SEPSIS [None]
